FAERS Safety Report 10387869 (Version 2)
Quarter: 2014Q3

REPORT INFORMATION
  Report Type: Spontaneous
  Country: US (occurrence: US)
  Receive Date: 20140815
  Receipt Date: 20140926
  Transmission Date: 20150326
  Serious: Yes (Other)
  Sender: FDA-Public Use
  Company Number: US-BAYER-2014-122171

PATIENT
  Age: 33 Year
  Sex: Female
  Weight: 54.42 kg

DRUGS (2)
  1. MIRENA [Suspect]
     Active Substance: LEVONORGESTREL
     Indication: CONTRACEPTION
     Dosage: 20 MCG/24HR, CONT
     Route: 015
     Dates: start: 20090623, end: 20121226
  2. LEVOTHYROXINE [Concomitant]
     Active Substance: LEVOTHYROXINE
     Indication: LYMPHADENOPATHY
     Dosage: UNK
     Dates: start: 2008, end: 2012

REACTIONS (7)
  - Injury [None]
  - Emotional distress [None]
  - Fear [None]
  - Scar [None]
  - Device issue [None]
  - Uterine perforation [None]
  - Pain [None]

NARRATIVE: CASE EVENT DATE: 20121226
